FAERS Safety Report 8929247 (Version 1)
Quarter: 2012Q4

REPORT INFORMATION
  Report Type: Spontaneous
  Country: GB (occurrence: None)
  Receive Date: 20121120
  Receipt Date: 20121120
  Transmission Date: 20130627
  Serious: Yes (Other)
  Sender: FDA-Public Use
  Company Number: AUR-APL-2012-04832

PATIENT
  Age: 68 Year
  Sex: Male
  Weight: 118 kg

DRUGS (1)
  1. MIRTAZAPINE [Suspect]
     Route: 048
     Dates: start: 20120415, end: 20120930

REACTIONS (4)
  - Aggression [None]
  - Hunger [None]
  - Depression [None]
  - Condition aggravated [None]
